FAERS Safety Report 6193444-1 (Version None)
Quarter: 2009Q2

REPORT INFORMATION
  Report Type: 
  Country: None (occurrence: None)
  Receive Date: 20090518
  Receipt Date: 20090210
  Transmission Date: 20091009
  Serious: Yes (Hospitalization)
  Sender: FDA-Public Use
  Company Number: US-ABBOTT-09P-163-0502745-00

PATIENT
  Sex: Female
  Weight: 55.388 kg

DRUGS (9)
  1. AZMACORT [Suspect]
     Indication: ASTHMA
     Dosage: ON AND OFF
     Dates: end: 20080801
  2. AZMACORT [Suspect]
     Dosage: 2 TO 3 TIMES A DAY
     Dates: start: 20080901, end: 20080901
  3. AZMACORT [Suspect]
     Dosage: 3 TO 4 TIMES A DAY
     Dates: start: 20080901
  4. PREDNISONE [Suspect]
     Indication: ASTHMA
     Dates: start: 20080801, end: 20080801
  5. PREDNISONE [Suspect]
     Dosage: TAPERED DOWN DOSE STARTING AT 60MG DAY
     Dates: start: 20080801
  6. ALBUTEROL [Concomitant]
     Indication: ASTHMA
     Dosage: 1-2 PUFFS
  7. THEOPHYLLINE [Concomitant]
     Indication: ASTHMA
  8. NORVASC [Concomitant]
     Indication: HYPERTENSION
  9. CALCIUM W/VITAMIN D [Concomitant]
     Indication: PROPHYLAXIS

REACTIONS (4)
  - ASTHMA [None]
  - MUSCULAR WEAKNESS [None]
  - MUSCULOSKELETAL STIFFNESS [None]
  - MYOPATHY [None]
